FAERS Safety Report 8105210-8 (Version None)
Quarter: 2012Q1

REPORT INFORMATION
  Report Type: 
  Country: None (occurrence: None)
  Receive Date: 20120201
  Receipt Date: 20120117
  Transmission Date: 20120608
  Serious: Yes (Hospitalization)
  Sender: FDA-Public Use
  Company Number: DE-TEVA-318572GER

PATIENT
  Sex: Female
  Weight: 100 kg

DRUGS (3)
  1. PREDNISOLONE [Suspect]
     Indication: HAEMOLYTIC ANAEMIA
     Dosage: 10 MILLIGRAM;
     Route: 048
     Dates: start: 20111001
  2. RITUXIMAB [Suspect]
     Indication: CHRONIC LYMPHOCYTIC LEUKAEMIA
     Dosage: 750 MILLIGRAM;
     Route: 042
     Dates: start: 20111129
  3. BENDAMUSTINE [Suspect]
     Indication: CHRONIC LYMPHOCYTIC LEUKAEMIA
     Dosage: 180 MILLIGRAM;
     Route: 042
     Dates: start: 20111130, end: 20111201

REACTIONS (1)
  - BRONCHOPNEUMONIA [None]
